FAERS Safety Report 24539806 (Version 1)
Quarter: 2024Q4

REPORT INFORMATION
  Report Type: Spontaneous
  Country: US (occurrence: None)
  Receive Date: 20241022
  Receipt Date: 20241022
  Transmission Date: 20250115
  Serious: Yes (Hospitalization)
  Sender: Public
  Company Number: None

PATIENT
  Sex: Female

DRUGS (8)
  1. VIGABATRIN [Suspect]
     Active Substance: VIGABATRIN
     Indication: Lennox-Gastaut syndrome
     Dosage: OTHER QUANTITY : 25 ML VIA G-TUBE ;?OTHER FREQUENCY : TWICE DAILY FOR 2 WKS.;?OTHER ROUTE : G-TUBE;?
     Route: 050
     Dates: start: 20170928
  2. VIGABATRIN [Suspect]
     Active Substance: VIGABATRIN
     Indication: Epilepsy
     Dosage: FREQUENCY : TWICE A DAY;?OTHER ROUTE : G-TUBE;?
     Route: 050
  3. VIGABATRIN [Suspect]
     Active Substance: VIGABATRIN
     Indication: Status epilepticus
  4. BACLOFEN [Concomitant]
     Active Substance: BACLOFEN
  5. LANSOPRAZOLE [Concomitant]
  6. METOCLOPRAMIDE [Concomitant]
     Active Substance: METOCLOPRAMIDE
  7. MULTI VIT/FL CHW [Concomitant]
  8. TOPAMAX [Concomitant]
     Active Substance: TOPIRAMATE

REACTIONS (1)
  - Hospitalisation [None]
